FAERS Safety Report 7318035-8 (Version None)
Quarter: 2011Q1

REPORT INFORMATION
  Report Type: 
  Country: None (occurrence: None)
  Receive Date: 20110228
  Receipt Date: 20110215
  Transmission Date: 20110831
  Serious: Yes (Other)
  Sender: FDA-Public Use
  Company Number: US-AMGEN-USASP2011009172

PATIENT
  Sex: Female

DRUGS (2)
  1. ARANESP [Suspect]
     Indication: DIALYSIS
     Dates: start: 20110209
  2. EPOGEN [Suspect]
     Indication: DIALYSIS
     Dosage: UNK UNK, 4 TIMES/WK
     Dates: start: 20100101, end: 20110101

REACTIONS (8)
  - ACTIVITIES OF DAILY LIVING IMPAIRED [None]
  - BLOOD COUNT ABNORMAL [None]
  - MALAISE [None]
  - INJECTION SITE PAIN [None]
  - LOSS OF CONSCIOUSNESS [None]
  - FALL [None]
  - TRANSFUSION [None]
  - BALANCE DISORDER [None]
